FAERS Safety Report 15498189 (Version 1)
Quarter: 2018Q4

REPORT INFORMATION
  Report Type: Spontaneous
  Country: US (occurrence: US)
  Receive Date: 20181005
  Receipt Date: 20181005
  Transmission Date: 20190205
  Serious: Yes (Life-Threatening, Hospitalization, Disabling)
  Sender: FDA-Public Use
  Company Number: None

PATIENT
  Age: 65 Year
  Sex: Male

DRUGS (1)
  1. ZOCOR [Suspect]
     Active Substance: SIMVASTATIN
     Dosage: ?          QUANTITY:40 TABLET(S);?
     Route: 048
     Dates: start: 20140404, end: 20140416

REACTIONS (3)
  - Amnesia [None]
  - Ischaemic stroke [None]
  - Therapy change [None]

NARRATIVE: CASE EVENT DATE: 20140407
